FAERS Safety Report 7525168-X (Version None)
Quarter: 2011Q2

REPORT INFORMATION
  Report Type: 
  Country: None (occurrence: None)
  Receive Date: 20110602
  Receipt Date: 20110602
  Transmission Date: 20111010
  Serious: Yes (Hospitalization)
  Sender: FDA-Public Use
  Company Number: None

PATIENT
  Age: 55 Year
  Sex: Male
  Weight: 74.8 kg

DRUGS (2)
  1. AMITRIPTYLINE HCL [Suspect]
     Indication: DEPRESSION
     Dosage: 50 MG OTHER PO
     Route: 048
     Dates: start: 20090209, end: 20090301
  2. AMITRIPTYLINE HCL [Suspect]
     Indication: PAIN
     Dosage: 50 MG OTHER PO
     Route: 048
     Dates: start: 20090209, end: 20090301

REACTIONS (3)
  - DIZZINESS [None]
  - GAIT DISTURBANCE [None]
  - DYSARTHRIA [None]
